FAERS Safety Report 9175591 (Version 2)
Quarter: 2013Q4

REPORT INFORMATION
  Report Type: Spontaneous
  Country: US (occurrence: US)
  Receive Date: 20120915
  Receipt Date: 20131101
  Transmission Date: 20140711
  Serious: No
  Sender: FDA-Public Use
  Company Number: US-009507513-1209USA005201

PATIENT
  Age: 20 Year
  Sex: Female

DRUGS (1)
  1. IMPLANON [Suspect]
     Indication: CONTRACEPTION
     Dosage: 3 YEAR IMPLANT
     Route: 059
     Dates: start: 201010, end: 201209

REACTIONS (3)
  - Device difficult to use [Unknown]
  - Device dislocation [Unknown]
  - No adverse event [Unknown]
